FAERS Safety Report 4739032-2 (Version None)
Quarter: 2005Q3

REPORT INFORMATION
  Report Type: 
  Country: None (occurrence: None)
  Receive Date: 20050801
  Receipt Date: 20050308
  Transmission Date: 20060218
  Serious: Yes (Hospitalization)
  Sender: FDA-Public Use
  Company Number: 211460

PATIENT
  Age: 75 Year
  Sex: Male
  Weight: 99.3 kg

DRUGS (1)
  1. RITUXAN [Suspect]
     Indication: IDIOPATHIC THROMBOCYTOPENIC PURPURA
     Dosage: 750 MG, 1/WEEK, INTRAVENOUS
     Route: 042
     Dates: start: 20041022, end: 20041115

REACTIONS (4)
  - ASTHENIA [None]
  - DYSPNOEA [None]
  - NIGHT SWEATS [None]
  - PYREXIA [None]
